FAERS Safety Report 24348222 (Version 1)
Quarter: 2024Q3

REPORT INFORMATION
  Report Type: Spontaneous
  Country: GB (occurrence: GB)
  Receive Date: 20240923
  Receipt Date: 20240923
  Transmission Date: 20241017
  Serious: Yes (Other)
  Sender: MSN LABORATORIES
  Company Number: None

PATIENT

DRUGS (5)
  1. ATORVASTATIN [Suspect]
     Active Substance: ATORVASTATIN
     Indication: Blood cholesterol decreased
     Dosage: ATORVASTATIN 20MG TABLETS?TAKE ONE DAILY TO LOWER CHOLESTEROL AND THEREFO...
     Route: 065
     Dates: start: 20240730
  2. APIXABAN [Concomitant]
     Active Substance: APIXABAN
     Indication: Product used for unknown indication
     Dosage: TAKE ONE TWICE DAILY
     Route: 065
     Dates: start: 20240822
  3. LANSOPRAZOLE [Concomitant]
     Active Substance: LANSOPRAZOLE
     Indication: Ulcer
     Dosage: TAKE ONE DAILY FOR ULCERS/INDIGESTION AS ON NAP...
     Route: 065
     Dates: start: 20221209
  4. NAPROXEN [Concomitant]
     Active Substance: NAPROXEN
     Indication: Analgesic therapy
     Dosage: TAKE ONE TWICE DAILY FOR PAIN RELIEF/OR ARTHR...
     Route: 065
     Dates: start: 20221209
  5. ADCAL [Concomitant]
     Indication: Product used for unknown indication
     Dosage: TAKE ONE TWICE DAILY
     Route: 065
     Dates: start: 20240221

REACTIONS (1)
  - Fixed eruption [Recovering/Resolving]
